FAERS Safety Report 8165809-X (Version None)
Quarter: 2012Q1

REPORT INFORMATION
  Report Type: 
  Country: None (occurrence: None)
  Receive Date: 20120227
  Receipt Date: 20120217
  Transmission Date: 20120608
  Serious: Yes (Hospitalization)
  Sender: FDA-Public Use
  Company Number: US-BAYER-2011-079369

PATIENT
  Age: 25 Year
  Sex: Female
  Weight: 52.608 kg

DRUGS (5)
  1. YAZ [Suspect]
     Indication: ACNE
     Dosage: UNK
     Dates: start: 20030101, end: 20070101
  2. XANAX [Concomitant]
     Indication: ANXIETY
     Dosage: ON AND OFF FOR 7 YEARS
  3. YASMIN [Suspect]
     Indication: ACNE
     Dosage: UNK
     Dates: start: 20030101, end: 20070101
  4. DROSPIRENONE AND ETHINYL ESTRADIOL [Suspect]
     Dosage: UNK
     Dates: start: 20030101, end: 20070101
  5. LITHIUM CARBONATE [Concomitant]
     Indication: BIPOLAR DISORDER
     Dosage: UNK
     Dates: start: 20070101

REACTIONS (4)
  - MITRAL VALVE PROLAPSE [None]
  - PALPITATIONS [None]
  - CHEST PAIN [None]
  - HEART RATE IRREGULAR [None]
